FAERS Safety Report 5522354-5 (Version None)
Quarter: 2007Q4

REPORT INFORMATION
  Report Type: 
  Country: None (occurrence: None)
  Receive Date: 20071120
  Receipt Date: 20071113
  Transmission Date: 20080405
  Serious: Yes (Life-Threatening, Hospitalization, Other)
  Sender: FDA-Public Use
  Company Number: JP-ABBOTT-06P-087-0347536-00

PATIENT
  Sex: Male

DRUGS (23)
  1. NORVIR [Suspect]
     Indication: HIV INFECTION
     Route: 048
     Dates: start: 20040407, end: 20050404
  2. NORVIR [Suspect]
     Route: 048
     Dates: start: 20050405, end: 20060130
  3. NORVIR [Suspect]
     Route: 048
     Dates: start: 20060131, end: 20060821
  4. NORVIR [Suspect]
     Route: 048
     Dates: start: 20060822, end: 20070317
  5. ENFUVIRTIDE [Suspect]
     Indication: HIV INFECTION
     Route: 058
     Dates: start: 20041219, end: 20050624
  6. TENOFOVIR DISOPROXIL FUMARATE [Suspect]
     Indication: HIV INFECTION
     Route: 048
     Dates: start: 20040401, end: 20061114
  7. LAMIVUDINE [Concomitant]
     Indication: HIV INFECTION
     Route: 048
     Dates: start: 20040401, end: 20061211
  8. LAMIVUDINE [Concomitant]
     Route: 048
     Dates: start: 20061212, end: 20070317
  9. ABACAVIR [Concomitant]
     Indication: HIV INFECTION
     Route: 048
     Dates: start: 20040401, end: 20040406
  10. ABACAVIR [Concomitant]
     Route: 048
     Dates: start: 20061212, end: 20070317
  11. NELFINAVIR [Concomitant]
     Indication: HIV INFECTION
     Route: 048
     Dates: start: 20040401, end: 20040406
  12. ATAZANAVIR SULFATE [Concomitant]
     Indication: HIV INFECTION
     Route: 048
     Dates: start: 20040407, end: 20050404
  13. AZITHROMYCIN [Concomitant]
     Indication: OPPORTUNISTIC INFECTION PROPHYLAXIS
     Route: 048
     Dates: start: 20040401
  14. BACTRIM [Concomitant]
     Indication: ANTIFUNGAL PROPHYLAXIS
     Route: 048
     Dates: start: 20040401, end: 20050822
  15. BACTRIM [Concomitant]
     Route: 048
     Dates: start: 20050823, end: 20060502
  16. BACTRIM [Concomitant]
     Route: 048
     Dates: start: 20060503, end: 20070129
  17. BACTRIM [Concomitant]
     Route: 048
     Dates: start: 20070130
  18. FOSAMPRENAVIR [Concomitant]
     Indication: HIV INFECTION
     Route: 048
     Dates: start: 20050405, end: 20060130
  19. TIPRANAVIR [Concomitant]
     Indication: HIV INFECTION
     Route: 048
     Dates: start: 20060131, end: 20060821
  20. ZIDOVUDINE [Concomitant]
     Indication: HIV INFECTION
     Route: 048
     Dates: start: 20050927, end: 20061211
  21. DIDANOSINE [Concomitant]
     Indication: HIV INFECTION
     Route: 048
     Dates: start: 20050607, end: 20050926
  22. DARUNAVIR [Concomitant]
     Indication: HIV INFECTION
     Route: 048
     Dates: start: 20060822, end: 20070317
  23. RABEPRAZOLE SODIUM [Concomitant]
     Indication: GASTRIC ULCER
     Route: 048
     Dates: start: 20070326

REACTIONS (6)
  - CONVULSION [None]
  - DEAFNESS [None]
  - HYPERURICAEMIA [None]
  - INJECTION SITE RASH [None]
  - OESOPHAGEAL CANDIDIASIS [None]
  - RENAL FAILURE CHRONIC [None]
